FAERS Safety Report 14243270 (Version 1)
Quarter: 2017Q4

REPORT INFORMATION
  Report Type: Spontaneous
  Country: PL (occurrence: PL)
  Receive Date: 20171201
  Receipt Date: 20171201
  Transmission Date: 20180321
  Serious: Yes (Other)
  Sender: FDA-Public Use
  Company Number: PL-TEVA-2017-PL-826556

PATIENT
  Age: 62 Year
  Sex: Female

DRUGS (8)
  1. DOXORUBICIN [Suspect]
     Active Substance: DOXORUBICIN
     Indication: GASTROINTESTINAL STROMAL TUMOUR
     Route: 065
     Dates: start: 201606, end: 201609
  2. IMATINIB [Suspect]
     Active Substance: IMATINIB
     Dosage: IN COMBINATION WITH CHEMOTHERAPY AS PER SCHEDULE ADIC (DOXORUBICIN AND DACARBAZINE)
     Dates: start: 201606, end: 201609
  3. SUNITINIB [Suspect]
     Active Substance: SUNITINIB
     Dates: start: 2014, end: 201507
  4. IMATINIB [Suspect]
     Active Substance: IMATINIB
     Indication: GASTROINTESTINAL STROMAL TUMOUR
     Route: 065
     Dates: start: 2009, end: 2014
  5. SUNITINIB [Suspect]
     Active Substance: SUNITINIB
     Indication: GASTROINTESTINAL STROMAL TUMOUR
     Route: 065
  6. DACARBAZINE. [Suspect]
     Active Substance: DACARBAZINE
     Indication: GASTROINTESTINAL STROMAL TUMOUR
     Route: 065
     Dates: start: 201606, end: 201609
  7. SORAFENIB [Suspect]
     Active Substance: SORAFENIB
     Indication: GASTROINTESTINAL STROMAL TUMOUR
     Route: 065
     Dates: start: 201507, end: 201606
  8. IMATINIB [Suspect]
     Active Substance: IMATINIB
     Dates: start: 2014, end: 2014

REACTIONS (1)
  - Disease progression [Not Recovered/Not Resolved]

NARRATIVE: CASE EVENT DATE: 201609
